FAERS Safety Report 18564960 (Version 1)
Quarter: 2020Q4

REPORT INFORMATION
  Report Type: Spontaneous
  Country: US (occurrence: US)
  Receive Date: 20201201
  Receipt Date: 20201201
  Transmission Date: 20210114
  Serious: No
  Sender: FDA-Public Use
  Company Number: US-JNJFOC-20201138481

PATIENT
  Age: 41 Year
  Sex: Female
  Weight: 61.29 kg

DRUGS (1)
  1. MENS ROGAINE [Suspect]
     Active Substance: MINOXIDIL
     Indication: ALOPECIA
     Dosage: PRODUCT LAST ADMINISTERED ON 18-NOV-2020
     Route: 061
     Dates: start: 20130101

REACTIONS (5)
  - Product use issue [Unknown]
  - Application site pain [Recovering/Resolving]
  - Alopecia [Recovering/Resolving]
  - Intentional product misuse [Unknown]
  - Application site pruritus [Recovering/Resolving]

NARRATIVE: CASE EVENT DATE: 20130101
